FAERS Safety Report 4840650-1 (Version None)
Quarter: 2005Q4

REPORT INFORMATION
  Report Type: 
  Country: None (occurrence: None)
  Receive Date: 20051024
  Receipt Date: 20050906
  Transmission Date: 20060501
  Serious: Yes (Hospitalization)
  Sender: FDA-Public Use
  Company Number: 2005-BP-15864BP

PATIENT
  Age: 51 Year
  Sex: Male

DRUGS (1)
  1. APTIVUS [Suspect]
     Indication: HIV INFECTION
     Dosage: APT/R 1000/400 MG (SEE TEXT, APTIVUS/R (2 CAPS) 500 MG/200MG TWICE DAILY) PO
     Route: 048
     Dates: start: 20040901

REACTIONS (2)
  - IMMUNE RECONSTITUTION SYNDROME [None]
  - PYREXIA [None]
